FAERS Safety Report 4690661-4 (Version None)
Quarter: 2005Q2

REPORT INFORMATION
  Report Type: 
  Country: None (occurrence: None)
  Receive Date: 20050615
  Receipt Date: 20050607
  Transmission Date: 20051028
  Serious: Yes (Disabling)
  Sender: FDA-Public Use
  Company Number: GB-GLAXOSMITHKLINE-B0383909A

PATIENT
  Age: 47 Year
  Sex: Female

DRUGS (3)
  1. MALARONE [Suspect]
     Indication: MALARIA PROPHYLAXIS
     Route: 048
     Dates: start: 20050511, end: 20050511
  2. SERETIDE [Concomitant]
     Route: 055
  3. NEOCLARITYN [Concomitant]
     Route: 065

REACTIONS (1)
  - SUPRAVENTRICULAR TACHYCARDIA [None]
